FAERS Safety Report 6484478-8 (Version None)
Quarter: 2009Q4

REPORT INFORMATION
  Report Type: 
  Country: None (occurrence: None)
  Receive Date: 20091209
  Receipt Date: 20091130
  Transmission Date: 20100525
  Serious: Yes (Hospitalization)
  Sender: FDA-Public Use
  Company Number: PHHY2009JP53008

PATIENT
  Age: 46 Year
  Sex: Female

DRUGS (2)
  1. DICLOFENAC SODIUM [Suspect]
     Indication: PYREXIA
  2. LOXONIN [Concomitant]

REACTIONS (2)
  - MENINGITIS ASEPTIC [None]
  - SYSTEMIC LUPUS ERYTHEMATOSUS [None]
